FAERS Safety Report 6749666-1 (Version None)
Quarter: 2010Q2

REPORT INFORMATION
  Report Type: 
  Country: None (occurrence: None)
  Receive Date: 20100601
  Receipt Date: 20100527
  Transmission Date: 20101027
  Serious: Yes (Hospitalization)
  Sender: FDA-Public Use
  Company Number: B0657477A

PATIENT
  Sex: Female

DRUGS (14)
  1. AUGMENTIN '125' [Suspect]
     Indication: DRUG USE FOR UNKNOWN INDICATION
     Dosage: 4G PER DAY
     Route: 042
     Dates: start: 20100510, end: 20100510
  2. ULTIVA [Suspect]
     Dosage: 2.27MG PER DAY
     Route: 042
     Dates: start: 20100510, end: 20100510
  3. ATRACURIUM [Suspect]
     Dosage: 75MG PER DAY
     Route: 042
     Dates: start: 20100510, end: 20100510
  4. PROPOFOL [Suspect]
     Route: 042
     Dates: start: 20100510, end: 20100510
  5. KETAMINE [Suspect]
     Route: 042
     Dates: start: 20100510, end: 20100511
  6. DROPERIDOL [Suspect]
     Dosage: 1.25MG PER DAY
     Route: 042
     Dates: start: 20100510, end: 20100511
  7. NEURONTIN [Suspect]
     Indication: PREMEDICATION
     Route: 048
     Dates: start: 20100509, end: 20100511
  8. BETADINE [Suspect]
     Indication: PREOPERATIVE CARE
     Dosage: 1UNIT PER DAY
     Route: 061
     Dates: start: 20100509, end: 20100510
  9. BETADINE [Suspect]
     Dosage: 1UNIT SINGLE DOSE
     Route: 067
     Dates: start: 20100510, end: 20100510
  10. CANDESARTAN CILEXETIL/HYDROCHLOROTHIAZIDE (ATACAND HCT) [Concomitant]
     Indication: DRUG USE FOR UNKNOWN INDICATION
     Dosage: 1UNIT PER DAY
     Route: 065
  11. CACIT D3 [Concomitant]
     Indication: DRUG USE FOR UNKNOWN INDICATION
     Route: 065
  12. LOVENOX [Concomitant]
     Indication: DRUG USE FOR UNKNOWN INDICATION
     Dosage: .4ML PER DAY
     Route: 065
     Dates: start: 20100509, end: 20100510
  13. RINGER'S [Concomitant]
     Dosage: 1.5L PER DAY
     Route: 065
     Dates: start: 20100510
  14. PHYSIOLOGICAL SERUM [Concomitant]
     Route: 065
     Dates: start: 20100510

REACTIONS (6)
  - BLOOD CREATININE INCREASED [None]
  - CRYSTAL URINE [None]
  - OLIGURIA [None]
  - POST PROCEDURAL HAEMATURIA [None]
  - PRODUCT QUALITY ISSUE [None]
  - RENAL FAILURE ACUTE [None]
